FAERS Safety Report 22946739 (Version 4)
Quarter: 2024Q2

REPORT INFORMATION
  Report Type: Report from Study
  Country: US (occurrence: US)
  Receive Date: 20230915
  Receipt Date: 20240425
  Transmission Date: 20240715
  Serious: Yes (Other)
  Sender: FDA-Public Use
  Company Number: US-UCBSA-2023024844

PATIENT
  Sex: Female

DRUGS (1)
  1. VIMPAT [Suspect]
     Active Substance: LACOSAMIDE
     Indication: Seizure
     Dosage: 200 MILLIGRAM, 2X/DAY (BID)
     Route: 048

REACTIONS (11)
  - Seizure [Unknown]
  - Epilepsy [Unknown]
  - Cochlea implant [Not Recovered/Not Resolved]
  - Brain injury [Not Recovered/Not Resolved]
  - Nasopharyngitis [Recovered/Resolved]
  - Eye infection [Recovered/Resolved]
  - Chalazion [Unknown]
  - Confusional state [Unknown]
  - Oropharyngeal pain [Not Recovered/Not Resolved]
  - Speech disorder [Not Recovered/Not Resolved]
  - Memory impairment [Not Recovered/Not Resolved]

NARRATIVE: CASE EVENT DATE: 20230101
